FAERS Safety Report 21865376 (Version 2)
Quarter: 2023Q2

REPORT INFORMATION
  Report Type: Report from Study
  Country: BR (occurrence: BR)
  Receive Date: 20230116
  Receipt Date: 20230517
  Transmission Date: 20230721
  Serious: Yes (Hospitalization)
  Sender: FDA-Public Use
  Company Number: BR-002147023-NVSC2020BR132504

PATIENT
  Age: 60 Year
  Sex: Female

DRUGS (5)
  1. COSENTYX [Suspect]
     Active Substance: SECUKINUMAB
     Indication: Psoriatic arthropathy
     Dosage: 300 MG, UNKNOWN
     Route: 065
     Dates: start: 20200413
  2. COSENTYX [Suspect]
     Active Substance: SECUKINUMAB
     Indication: Psoriasis
     Dosage: 300 MG
     Route: 065
     Dates: start: 20200511
  3. COSENTYX [Suspect]
     Active Substance: SECUKINUMAB
     Dosage: 300 MG, UNKNOWN
     Route: 065
     Dates: start: 20200813
  4. COSENTYX [Suspect]
     Active Substance: SECUKINUMAB
     Dosage: 300 MG, EVERY 28 DAYS
     Route: 065
  5. COSENTYX [Suspect]
     Active Substance: SECUKINUMAB
     Dosage: 150 MG, EVERY 28 DAYS, MORE THAN 6 MONTHS AGO
     Route: 065

REACTIONS (30)
  - Bursitis [Recovered/Resolved with Sequelae]
  - Peripheral swelling [Unknown]
  - Pain in extremity [Unknown]
  - Psoriasis [Recovered/Resolved]
  - Fatigue [Unknown]
  - Grip strength decreased [Unknown]
  - Malaise [Unknown]
  - Feeling hot [Unknown]
  - Pain [Recovering/Resolving]
  - Oedema [Unknown]
  - Limb injury [Unknown]
  - Insomnia [Unknown]
  - Blister [Unknown]
  - Ill-defined disorder [Unknown]
  - Skin lesion [Not Recovered/Not Resolved]
  - Limb deformity [Unknown]
  - Swelling [Not Recovered/Not Resolved]
  - Rash [Unknown]
  - Erythema [Unknown]
  - Skin exfoliation [Unknown]
  - Arthritis [Unknown]
  - Muscular weakness [Not Recovered/Not Resolved]
  - Joint swelling [Unknown]
  - Arthralgia [Not Recovered/Not Resolved]
  - Skin haemorrhage [Not Recovered/Not Resolved]
  - Wound [Not Recovered/Not Resolved]
  - Gait disturbance [Unknown]
  - Influenza like illness [Recovered/Resolved]
  - Drug hypersensitivity [Unknown]
  - Drug ineffective [Unknown]

NARRATIVE: CASE EVENT DATE: 20200413
